FAERS Safety Report 11556241 (Version 1)
Quarter: 2015Q3

REPORT INFORMATION
  Report Type: Spontaneous
  Country: ES (occurrence: ES)
  Receive Date: 20150925
  Receipt Date: 20150925
  Transmission Date: 20151125
  Serious: Yes (Other)
  Sender: FDA-Public Use
  Company Number: ES-BRISTOL-MYERS SQUIBB COMPANY-BMS-2015-061989

PATIENT
  Age: 53 Year
  Sex: Male

DRUGS (6)
  1. ARCOXIA [Concomitant]
     Active Substance: ETORICOXIB
     Indication: ARTHRITIS
     Dosage: 30 MG, QD
     Route: 048
     Dates: start: 20140911
  2. METOJECT [Concomitant]
     Active Substance: METHOTREXATE SODIUM
     Indication: ARTHRITIS
     Dosage: 1 DF, QWK
     Route: 058
     Dates: start: 2006
  3. DACORTIN [Concomitant]
     Active Substance: PREDNISONE
     Indication: ARTHRITIS
     Dosage: 15 MG, UNK
     Route: 048
     Dates: start: 20140109, end: 20140313
  4. ORENCIA [Suspect]
     Active Substance: ABATACEPT
     Indication: RHEUMATOID ARTHRITIS
     Dosage: UNK, QWK
     Route: 058
     Dates: start: 20140111
  5. DACORTIN [Concomitant]
     Active Substance: PREDNISONE
     Dosage: 7.5 MG, UNK
     Route: 048
     Dates: start: 20140313
  6. SERC                               /00034201/ [Concomitant]
     Indication: VERTIGO
     Dosage: 16 MG, UNK
     Route: 048
     Dates: start: 201403, end: 20150115

REACTIONS (1)
  - Granuloma annulare [Recovering/Resolving]

NARRATIVE: CASE EVENT DATE: 201409
